FAERS Safety Report 22712581 (Version 3)
Quarter: 2024Q1

REPORT INFORMATION
  Report Type: Spontaneous
  Country: US (occurrence: US)
  Receive Date: 20230717
  Receipt Date: 20240102
  Transmission Date: 20240410
  Serious: Yes (Hospitalization)
  Sender: FDA-Public Use
  Company Number: US-BRISTOL-MYERS SQUIBB COMPANY-2023-099559

PATIENT
  Age: 79 Year
  Sex: Female

DRUGS (2)
  1. LENALIDOMIDE [Suspect]
     Active Substance: LENALIDOMIDE
     Indication: Plasma cell myeloma
     Dosage: TAKE 1 CAPSULE BY MOUTH EVERY DAY FOR 21 DAYS, FOLLOWED BY 7 DAYS OFF
     Route: 048
     Dates: start: 20221205
  2. LENALIDOMIDE [Suspect]
     Active Substance: LENALIDOMIDE
     Dosage: TAKE 1 CAPSULE BY MOUTH EVERY DAY FOR 21 DAYS, FOLLOWED BY 7 DAYS OFF
     Route: 048
     Dates: start: 20221028

REACTIONS (10)
  - Arthralgia [Unknown]
  - Constipation [Unknown]
  - Decreased appetite [Unknown]
  - Somnolence [Unknown]
  - Fatigue [Unknown]
  - Dyspnoea exertional [Unknown]
  - Glossodynia [Unknown]
  - Nausea [Unknown]
  - Dry skin [Unknown]
  - Insomnia [Unknown]
